FAERS Safety Report 10575983 (Version 1)
Quarter: 2014Q4

REPORT INFORMATION
  Report Type: Spontaneous
  Country: US (occurrence: None)
  Receive Date: 20141110
  Receipt Date: 20141110
  Transmission Date: 20150529
  Serious: Yes (Hospitalization)
  Sender: FDA-Public Use
  Company Number: None

PATIENT
  Age: 74 Year
  Sex: Male
  Weight: 99.1 kg

DRUGS (2)
  1. DEXTROSE/HEPARIN [Suspect]
     Active Substance: DEXTROSE\HEPARIN
     Indication: SURGERY
     Dosage: 1800 UNITS, PER HOUR
     Route: 042
     Dates: start: 20141023, end: 20141024
  2. DEXTROSE/HEPARIN [Suspect]
     Active Substance: DEXTROSE\HEPARIN
     Indication: CARDIOVASCULAR DISORDER
     Dosage: 1800 UNITS, PER HOUR
     Route: 042
     Dates: start: 20141023, end: 20141024

REACTIONS (7)
  - Skin haemorrhage [None]
  - Activated partial thromboplastin time prolonged [None]
  - Infusion site haematoma [None]
  - Scratch [None]
  - International normalised ratio increased [None]
  - Product quality issue [None]
  - Haemorrhage [None]

NARRATIVE: CASE EVENT DATE: 20141024
